FAERS Safety Report 12493706 (Version 2)
Quarter: 2018Q4

REPORT INFORMATION
  Report Type: Report from Study
  Country: FR (occurrence: FR)
  Receive Date: 20160623
  Receipt Date: 20181012
  Transmission Date: 20190204
  Serious: Yes (Hospitalization)
  Sender: FDA-Public Use
  Company Number: FR-JNJFOC-20160112250

PATIENT
  Age: 40 Year
  Sex: Female
  Weight: 49 kg

DRUGS (1)
  1. SIMPONI [Suspect]
     Active Substance: GOLIMUMAB
     Indication: ANKYLOSING SPONDYLITIS
     Route: 058
     Dates: start: 20151124, end: 20151218

REACTIONS (9)
  - Paraesthesia [Recovered/Resolved]
  - Drug intolerance [Unknown]
  - Initial insomnia [Recovered/Resolved]
  - Amnesia [Recovered/Resolved]
  - Seizure [Not Recovered/Not Resolved]
  - Adverse event [Recovered/Resolved]
  - Gait disturbance [Recovered/Resolved]
  - Pain [Not Recovered/Not Resolved]
  - Middle insomnia [Recovered/Resolved]

NARRATIVE: CASE EVENT DATE: 2015
